FAERS Safety Report 18442577 (Version 1)
Quarter: 2020Q4

REPORT INFORMATION
  Report Type: Spontaneous
  Country: US (occurrence: US)
  Receive Date: 20201029
  Receipt Date: 20201029
  Transmission Date: 20210114
  Serious: No
  Sender: FDA-Public Use
  Company Number: US-PFIZER INC-2020417910

PATIENT
  Age: 57 Year
  Sex: Female
  Weight: 68.48 kg

DRUGS (1)
  1. IBRANCE [Suspect]
     Active Substance: PALBOCICLIB
     Indication: BREAST CANCER FEMALE
     Dosage: 125 MG (DAILY 21 DAYS)
     Route: 048
     Dates: start: 20171002

REACTIONS (1)
  - Blister [Recovered/Resolved]
